FAERS Safety Report 11283093 (Version 1)
Quarter: 2015Q3

REPORT INFORMATION
  Report Type: Spontaneous
  Country: US (occurrence: None)
  Receive Date: 20150717
  Receipt Date: 20150717
  Transmission Date: 20151125
  Serious: No
  Sender: FDA-Public Use
  Company Number: None

PATIENT
  Age: 70 Year
  Sex: Male
  Weight: 124.29 kg

DRUGS (14)
  1. ONETOUCH DELICA LANCETS FINE MISC [Concomitant]
  2. BLOOD PRESSURE MONITOR DEVI [Concomitant]
  3. ONETOUCH ULTRA 2 W/DEVICE KIT [Concomitant]
  4. LOSARTAN POTASSIUM. [Concomitant]
     Active Substance: LOSARTAN POTASSIUM
  5. RA VITAMIN D3 [Concomitant]
  6. ZYRTEC [Concomitant]
     Active Substance: CETIRIZINE HYDROCHLORIDE
  7. ONETOUCH ULTRA BLUE STRP [Concomitant]
  8. VENTOLIN HFA [Concomitant]
     Active Substance: ALBUTEROL SULFATE
  9. LEVEMIR [Suspect]
     Active Substance: INSULIN DETEMIR
     Indication: TYPE 2 DIABETES MELLITUS
     Dosage: 1 INJECTION NOON TIME 1 INJECTION
     Dates: start: 20150629, end: 20150703
  10. CPAP [Concomitant]
     Active Substance: DEVICE
  11. LASIX [Concomitant]
     Active Substance: FUROSEMIDE
  12. AMOXICILLIN. [Concomitant]
     Active Substance: AMOXICILLIN
  13. LEVEMIR [Concomitant]
     Active Substance: INSULIN DETEMIR
  14. ASPIRIN. [Concomitant]
     Active Substance: ASPIRIN

REACTIONS (1)
  - Muscle spasms [None]

NARRATIVE: CASE EVENT DATE: 20150701
